FAERS Safety Report 9309851 (Version 1)
Quarter: 2013Q2

REPORT INFORMATION
  Report Type: Spontaneous
  Country: US (occurrence: US)
  Receive Date: 20130525
  Receipt Date: 20130525
  Transmission Date: 20140414
  Serious: Yes (Hospitalization, Other)
  Sender: FDA-Public Use
  Company Number: US-BRISTOL-MYERS SQUIBB COMPANY-18752105

PATIENT
  Age: 60 Year
  Sex: Female
  Weight: 66.21 kg

DRUGS (3)
  1. BYDUREON [Suspect]
     Indication: TYPE 2 DIABETES MELLITUS
     Route: 058
     Dates: start: 201207
  2. PROPOFOL [Concomitant]
     Indication: SEDATION
  3. MIRALAX [Concomitant]
     Indication: BOWEL PREPARATION

REACTIONS (5)
  - Oxygen saturation decreased [Recovered/Resolved]
  - Aspiration [Recovered/Resolved]
  - Nausea [Recovering/Resolving]
  - Abdominal distension [Recovering/Resolving]
  - Vomiting [Recovering/Resolving]
